FAERS Safety Report 10561698 (Version 2)
Quarter: 2015Q1

REPORT INFORMATION
  Report Type: Spontaneous
  Country: DE (occurrence: DE)
  Receive Date: 20141103
  Receipt Date: 20150120
  Transmission Date: 20150720
  Serious: Yes (Death, Hospitalization)
  Sender: FDA-Public Use
  Company Number: DE-BAXTER-2014BAX063789

PATIENT
  Age: 81 Year
  Sex: Female

DRUGS (1)
  1. CIPROFLOXACIN REDIBAG 400 MG/ 200 ML INFUSIONSLOSUNG [Suspect]
     Active Substance: CIPROFLOXACIN
     Indication: BRONCHITIS
     Route: 048
     Dates: start: 201410

REACTIONS (2)
  - Drug hypersensitivity [Fatal]
  - Pneumomediastinum [Unknown]

NARRATIVE: CASE EVENT DATE: 201410
